FAERS Safety Report 9412297 (Version 4)
Quarter: 2013Q4

REPORT INFORMATION
  Report Type: Report from Study
  Country: JP (occurrence: JP)
  Receive Date: 20130722
  Receipt Date: 20131101
  Transmission Date: 20140711
  Serious: Yes (Death, Life-Threatening)
  Sender: FDA-Public Use
  Company Number: JP-PFIZER INC-2013209119

PATIENT
  Age: 83 Year
  Sex: Female
  Weight: 46.8 kg

DRUGS (17)
  1. XALKORI [Suspect]
     Indication: NON-SMALL CELL LUNG CANCER
     Dosage: 250 MG, 2X/DAY
     Route: 048
     Dates: start: 20130613, end: 20130707
  2. OLMETEC [Concomitant]
     Dosage: 20 MG, 2X/DAY
     Route: 048
     Dates: end: 20130710
  3. PROMAC D [Concomitant]
     Dosage: 75 MG, 3X/DAY
     Route: 048
     Dates: end: 20130710
  4. AIDEITOROL [Concomitant]
     Dosage: 10 MG, 2X/DAY
     Route: 048
     Dates: end: 20130710
  5. RABEPRAZOLE SODIUM [Concomitant]
     Dosage: 10 MG, 1X/DAY
     Route: 048
     Dates: end: 20130710
  6. GASMOTIN [Concomitant]
     Dosage: 5 MG, 3X/DAY
     Route: 048
     Dates: end: 20130710
  7. CALONAL [Concomitant]
     Dosage: 400 MG, AS NEEDED
     Route: 048
     Dates: end: 20130710
  8. ADOFEED [Concomitant]
     Dosage: 40 MG, AS NEEDED
     Route: 062
     Dates: end: 20130710
  9. CARBOCISTEINE [Concomitant]
     Dosage: 500 MG, 3X/DAY
     Route: 048
     Dates: end: 20130616
  10. PRIMPERAN [Concomitant]
     Dosage: 5 MG, 3X/DAY
     Route: 048
     Dates: start: 20130614, end: 20130710
  11. CARBOCISTEINE [Concomitant]
     Dosage: 10 ML, 3X/DAY
     Route: 048
     Dates: start: 20130616, end: 20130710
  12. LOXOPROFEN SODIUM [Concomitant]
     Dosage: 60 MG, AS NEEDED
     Route: 048
     Dates: start: 20130617, end: 20130710
  13. LASIX [Concomitant]
     Dosage: 20 MG, 1X/DAY
     Route: 048
     Dates: start: 20130617, end: 20130710
  14. VEEN D [Concomitant]
     Dosage: 500 G, 1X/DAY
     Dates: start: 20130619, end: 20130701
  15. RINDERON [Concomitant]
     Dosage: 2 MG, 1X/DAY
     Dates: start: 20130612, end: 20130617
  16. PICIBANIL [Concomitant]
     Indication: PLEURODESIS
     Dosage: 10 KE, 1X/DAY
     Dates: start: 20130704, end: 20130704
  17. MAINTENANCE MEDIUM (KN NO.3) [Concomitant]
     Dosage: 500 ML, 2X/DAY
     Dates: start: 20130610, end: 20130619

REACTIONS (3)
  - Hyponatraemia [Not Recovered/Not Resolved]
  - Disease progression [Fatal]
  - Non-small cell lung cancer [Fatal]
